FAERS Safety Report 21422894 (Version 2)
Quarter: 2023Q1

REPORT INFORMATION
  Report Type: Report from Study
  Country: FR (occurrence: FR)
  Receive Date: 20221007
  Receipt Date: 20230217
  Transmission Date: 20230418
  Serious: Yes (Hospitalization)
  Sender: FDA-Public Use
  Company Number: FR-SERVIER-S22010188

PATIENT

DRUGS (12)
  1. PEGASPARGASE [Suspect]
     Active Substance: PEGASPARGASE
     Indication: Acute lymphocytic leukaemia
     Dosage: 2775 [IU], ON D4, D43
     Route: 042
     Dates: start: 20220816
  2. PEGASPARGASE [Suspect]
     Active Substance: PEGASPARGASE
     Dosage: UNK
     Route: 065
     Dates: start: 20221003
  3. CYTARABINE [Suspect]
     Active Substance: CYTARABINE
     Indication: Acute lymphocytic leukaemia
     Dosage: 30 MG, ON D4, D31
     Route: 037
     Dates: start: 20220816, end: 20220912
  4. CYTARABINE [Suspect]
     Active Substance: CYTARABINE
     Dosage: 83 MG, D31-D34, D38-D41
     Route: 042
     Dates: start: 20220912
  5. HYDROCORTISONE [Suspect]
     Active Substance: HYDROCORTISONE
     Indication: Acute lymphocytic leukaemia
     Dosage: 15 MG, ON D4, D31
     Route: 037
     Dates: start: 20220816, end: 20220912
  6. METHOTREXATE [Suspect]
     Active Substance: METHOTREXATE
     Indication: Acute lymphocytic leukaemia
     Dosage: 15 MG, ON D4, D31
     Route: 037
     Dates: start: 20220816, end: 20220912
  7. DOXORUBICIN [Suspect]
     Active Substance: DOXORUBICIN
     Indication: Acute lymphocytic leukaemia
     Dosage: 28 MG, ON D1, D8, D15
     Route: 042
     Dates: start: 20220812, end: 20220826
  8. ONCOVIN [Suspect]
     Active Substance: VINCRISTINE SULFATE
     Indication: Acute lymphocytic leukaemia
     Dosage: 1.7 MG, ON D1, D8, D15
     Route: 042
     Dates: start: 20220812, end: 20220826
  9. ONCOVIN [Suspect]
     Active Substance: VINCRISTINE SULFATE
     Dosage: UNK, D43
     Route: 065
     Dates: start: 20221003
  10. CYCLOPHOSPHAMIDE [Suspect]
     Active Substance: CYCLOPHOSPHAMIDE
     Indication: Acute lymphocytic leukaemia
     Dosage: 1120 MG, ON D29
     Route: 042
     Dates: start: 20220909, end: 20220909
  11. DEXAMETHASONE [Suspect]
     Active Substance: DEXAMETHASONE
     Indication: Acute lymphocytic leukaemia
     Dosage: 33 MG, D1-D7, D15-D21
     Route: 048
     Dates: start: 20220812, end: 20220901
  12. THIOGUANINE ANHYDROUS [Suspect]
     Active Substance: THIOGUANINE ANHYDROUS
     Indication: Acute lymphocytic leukaemia
     Dosage: 60 MG, D29-D42
     Route: 048
     Dates: start: 20220909, end: 20220922

REACTIONS (1)
  - Hemiparesis [Recovered/Resolved]

NARRATIVE: CASE EVENT DATE: 20220922
